FAERS Safety Report 8013007-2 (Version None)
Quarter: 2011Q4

REPORT INFORMATION
  Report Type: 
  Country: None (occurrence: None)
  Receive Date: 20111229
  Receipt Date: 20111219
  Transmission Date: 20120403
  Serious: Yes (Death)
  Sender: FDA-Public Use
  Company Number: US-PFIZER INC-2011310056

PATIENT
  Age: 45 Year
  Sex: Female

DRUGS (4)
  1. DIPHENHYDRAMINE [Suspect]
  2. ALPRAZOLAM [Suspect]
  3. FLUOXETINE [Suspect]
  4. PROPOXYPHENE HYDROCHLORIDE [Suspect]

REACTIONS (3)
  - RESPIRATORY ARREST [None]
  - CARDIAC ARREST [None]
  - DRUG ABUSE [None]
